FAERS Safety Report 5061327-6 (Version None)
Quarter: 2006Q3

REPORT INFORMATION
  Report Type: 
  Country: None (occurrence: None)
  Receive Date: 20060719
  Receipt Date: 20060719
  Transmission Date: 20061208
  Serious: Yes (Hospitalization)
  Sender: FDA-Public Use
  Company Number: None

PATIENT
  Sex: Male
  Weight: 104.3273 kg

DRUGS (1)
  1. AZATHIOPRINE [Suspect]
     Indication: DERMATITIS CONTACT
     Dosage: 50MG ONCE DAILY BY MOUTH
     Route: 048
     Dates: start: 20060421, end: 20060507

REACTIONS (6)
  - ARTHRALGIA [None]
  - DERMATITIS CONTACT [None]
  - DIARRHOEA [None]
  - INFLUENZA [None]
  - PYREXIA [None]
  - RASH [None]
